FAERS Safety Report 7393990-9 (Version None)
Quarter: 2011Q2

REPORT INFORMATION
  Report Type: 
  Country: None (occurrence: None)
  Receive Date: 20110405
  Receipt Date: 20100622
  Transmission Date: 20111010
  Serious: No
  Sender: FDA-Public Use
  Company Number: US-AMGEN-KDL419995

PATIENT
  Sex: Female

DRUGS (4)
  1. NEULASTA [Suspect]
     Indication: CHEMOTHERAPY
     Dosage: 6 MG, UNK
  2. CYCLOPHOSPHAMIDE [Concomitant]
     Dosage: UNK UNK, UNK
  3. DOXORUBICIN HCL [Concomitant]
     Dosage: UNK UNK, UNK
  4. APREPITANT [Concomitant]
     Dosage: UNK UNK, UNK

REACTIONS (6)
  - NAUSEA [None]
  - MEMORY IMPAIRMENT [None]
  - MALAISE [None]
  - FATIGUE [None]
  - BONE PAIN [None]
  - COGNITIVE DISORDER [None]
